FAERS Safety Report 4281576-4 (Version None)
Quarter: 2004Q1

REPORT INFORMATION
  Report Type: 
  Country: None (occurrence: None)
  Receive Date: 20040128
  Receipt Date: 20040123
  Transmission Date: 20041129
  Serious: Yes (Hospitalization)
  Sender: FDA-Public Use
  Company Number: FR-SHR-03-019227

PATIENT
  Age: 71 Year
  Sex: Male
  Weight: 71 kg

DRUGS (9)
  1. MAGNEVIST [Suspect]
     Dosage: 20 ML, INTRAVENOUS
     Route: 042
     Dates: start: 20031231, end: 20031231
  2. PYOSTACINE (PRISTINAMYCIN) [Concomitant]
  3. TAVANIC (LEVOFLOXACIN) [Concomitant]
  4. IBUPROFEN [Concomitant]
  5. ALPRAZOLAM [Concomitant]
  6. ZYLORIC ^FAES^ [Concomitant]
  7. TICLID [Concomitant]
  8. SERMION (NICERGOLINE) [Concomitant]
  9. STRESAM (ETIFOXINE) [Concomitant]

REACTIONS (4)
  - ANGIONEUROTIC OEDEMA [None]
  - HYPOTENSION [None]
  - MALAISE [None]
  - SHOCK [None]
